FAERS Safety Report 8078217-7 (Version None)
Quarter: 2012Q1

REPORT INFORMATION
  Report Type: 
  Country: None (occurrence: None)
  Receive Date: 20120127
  Receipt Date: 20110108
  Transmission Date: 20120608
  Serious: No
  Sender: FDA-Public Use
  Company Number: US-ABBOTT-11P-163-0696220-00

PATIENT
  Age: 30 Year
  Sex: Male

DRUGS (3)
  1. MESALAMINE [Concomitant]
     Indication: CROHN'S DISEASE
  2. DICYCLOMINE [Concomitant]
     Indication: CROHN'S DISEASE
  3. HUMIRA [Suspect]
     Indication: COLITIS ULCERATIVE
     Dosage: 1 PEN EVERY OTHER WEEK
     Dates: start: 20100901, end: 20101207

REACTIONS (1)
  - DRUG INEFFECTIVE [None]
